FAERS Safety Report 8988426 (Version 1)
Quarter: 2012Q4

REPORT INFORMATION
  Report Type: 
  Country: US (occurrence: None)
  Receive Date: 20121221
  Receipt Date: 20121221
  Transmission Date: 20130627
  Serious: No
  Sender: FDA-Public Use
  Company Number: None

PATIENT
  Sex: Female
  Weight: 83.18 kg

DRUGS (2)
  1. 5-FLUOROURACIL [Suspect]
  2. ELOXATIN [Suspect]

REACTIONS (1)
  - Lymphocyte count decreased [None]
